FAERS Safety Report 13046787 (Version 1)
Quarter: 2016Q4

REPORT INFORMATION
  Report Type: Spontaneous
  Country: US (occurrence: US)
  Receive Date: 20161220
  Receipt Date: 20161220
  Transmission Date: 20170207
  Serious: No
  Sender: FDA-Public Use
  Company Number: US-CELGENEUS-USA-2016125337

PATIENT
  Age: 73 Year
  Sex: Female

DRUGS (3)
  1. REVLIMID [Suspect]
     Active Substance: LENALIDOMIDE
     Indication: PLASMA CELL MYELOMA
     Dosage: 10 MG
     Route: 048
     Dates: start: 201108
  2. REVLIMID [Suspect]
     Active Substance: LENALIDOMIDE
     Dosage: 15 MG
     Route: 048
     Dates: start: 20160621
  3. REVLIMID [Suspect]
     Active Substance: LENALIDOMIDE
     Dosage: 5 MG
     Route: 048
     Dates: start: 201110

REACTIONS (1)
  - Adverse drug reaction [Recovered/Resolved]

NARRATIVE: CASE EVENT DATE: 20161216
